FAERS Safety Report 17517255 (Version 1)
Quarter: 2020Q1

REPORT INFORMATION
  Report Type: Spontaneous
  Country: US (occurrence: US)
  Receive Date: 20200308
  Receipt Date: 20200308
  Transmission Date: 20200409
  Serious: Yes (Disabling, Other)
  Sender: FDA-Public Use
  Company Number: None

PATIENT
  Age: 31 Month
  Sex: Female
  Weight: 51.75 kg

DRUGS (1)
  1. SINGULAIR [Suspect]
     Active Substance: MONTELUKAST SODIUM
     Indication: HYPERSENSITIVITY

REACTIONS (8)
  - Emotional disorder [None]
  - Mood altered [None]
  - Fatigue [None]
  - Screaming [None]
  - Crying [None]
  - Anxiety [None]
  - Sleep terror [None]
  - Hyperhidrosis [None]

NARRATIVE: CASE EVENT DATE: 20020101
